FAERS Safety Report 6442151-6 (Version None)
Quarter: 2009Q4

REPORT INFORMATION
  Report Type: 
  Country: None (occurrence: None)
  Receive Date: 20091116
  Receipt Date: 20091110
  Transmission Date: 20100525
  Serious: Yes (Life-Threatening, Hospitalization, Other)
  Sender: FDA-Public Use
  Company Number: PHHY2008DE32084

PATIENT
  Age: 41 Year
  Sex: Male
  Weight: 56 kg

DRUGS (3)
  1. VOLTAREN [Suspect]
     Indication: BACK PAIN
     Dosage: 25 MG, 3X1 TABS/DAY  IN THE FIRST WEEK
     Route: 048
     Dates: start: 20080611
  2. VOLTAREN [Suspect]
     Dosage: 25 MG, 20 X 1 TAB/DAY
     Route: 048
  3. VOLTAREN [Suspect]
     Dosage: 12.5 MG, TID
     Route: 048
     Dates: end: 20080708

REACTIONS (19)
  - BLOOD CALCIUM DECREASED [None]
  - BLOOD POTASSIUM DECREASED [None]
  - BLOOD SODIUM DECREASED [None]
  - BLOOD UREA INCREASED [None]
  - C-REACTIVE PROTEIN INCREASED [None]
  - DUODENAL ULCER [None]
  - GAMMA-GLUTAMYLTRANSFERASE INCREASED [None]
  - GASTROINTESTINAL HAEMORRHAGE [None]
  - HAEMATEMESIS [None]
  - HELICOBACTER INFECTION [None]
  - HIATUS HERNIA [None]
  - LAPAROTOMY [None]
  - MELAENA [None]
  - MUCOSAL DISCOLOURATION [None]
  - OVERDOSE [None]
  - PAIN [None]
  - PYLOROPLASTY [None]
  - REFLUX OESOPHAGITIS [None]
  - WHITE BLOOD CELL COUNT INCREASED [None]
